FAERS Safety Report 6780839-8 (Version None)
Quarter: 2010Q2

REPORT INFORMATION
  Report Type: 
  Country: None (occurrence: None)
  Receive Date: 20100621
  Receipt Date: 20100325
  Transmission Date: 20101027
  Serious: Yes (Hospitalization, Disabling, Other)
  Sender: FDA-Public Use
  Company Number: US-BAYER-201025409NA

PATIENT
  Age: 19 Year
  Sex: Female
  Weight: 49 kg

DRUGS (16)
  1. YAZ [Suspect]
     Indication: CONTRACEPTION
     Route: 048
  2. YASMIN [Suspect]
     Indication: CONTRACEPTION
     Route: 048
     Dates: start: 20060601
  3. BENZONATATE CAP [Concomitant]
  4. AZITHROMYCIN [Concomitant]
     Dates: start: 20051201
  5. CARISOPRODOL [Concomitant]
     Dates: start: 20070201
  6. HYDROCODONE BITARTRATE AND ACETAMINOPHEN [Concomitant]
  7. HYDROCORTISONE [Concomitant]
  8. TRIAMCINOLONE [Concomitant]
     Dates: start: 20070701
  9. LIDOCAINE 2% [Concomitant]
     Dates: start: 20070701
  10. PREVPAC PATIENT PACK [Concomitant]
     Dates: start: 20071001
  11. HYDROXYZINE HCL [Concomitant]
     Dates: start: 20071201
  12. PHENAZOPYRIDINE HCL TAB [Concomitant]
  13. ANTIBIOTICS [Concomitant]
     Indication: HELICOBACTER INFECTION
  14. PROTONIX [Concomitant]
     Dates: start: 20080301
  15. MOTRIN [Concomitant]
  16. ADVIL LIQUI-GELS [Concomitant]

REACTIONS (5)
  - ABDOMINAL PAIN UPPER [None]
  - APHAGIA [None]
  - GALLBLADDER DISORDER [None]
  - NAUSEA [None]
  - WEIGHT DECREASED [None]
